FAERS Safety Report 10665857 (Version 1)
Quarter: 2014Q4

REPORT INFORMATION
  Report Type: Spontaneous
  Country: US (occurrence: US)
  Receive Date: 20141219
  Receipt Date: 20141219
  Transmission Date: 20150529
  Serious: No
  Sender: FDA-Public Use
  Company Number: US-009507513-1412USA000661

PATIENT
  Age: 50 Year
  Sex: Male

DRUGS (7)
  1. PROMACTA [Concomitant]
     Active Substance: ELTROMBOPAG OLAMINE
  2. PEGINTRON [Suspect]
     Active Substance: PEGINTERFERON ALFA-2B
     Indication: HEPATITIS C
     Dosage: 120 MCG, QW
     Dates: start: 20141129
  3. RISPERDAL [Concomitant]
     Active Substance: RISPERIDONE
  4. ASCORBIC ACID. [Concomitant]
     Active Substance: ASCORBIC ACID
  5. RIBASPHERE RIBAPAK [Concomitant]
     Active Substance: RIBAVIRIN
  6. SOVALDI [Concomitant]
     Active Substance: SOFOSBUVIR
  7. OMEGA-3 MARINE TRIGLYCERIDES [Concomitant]
     Active Substance: FISH OIL

REACTIONS (3)
  - Mood altered [Unknown]
  - Fatigue [Unknown]
  - Overdose [Unknown]

NARRATIVE: CASE EVENT DATE: 20141129
